FAERS Safety Report 25658590 (Version 1)
Quarter: 2025Q3

REPORT INFORMATION
  Report Type: Report from Study
  Country: CA (occurrence: CA)
  Receive Date: 20250808
  Receipt Date: 20250808
  Transmission Date: 20251021
  Serious: Yes (Other)
  Sender: ROCHE
  Company Number: CA-ROCHE-10000354435

PATIENT
  Age: 66 Year
  Sex: Female

DRUGS (1)
  1. VABYSMO [Suspect]
     Active Substance: FARICIMAB-SVOA
     Indication: Retinal vein occlusion
     Route: 050
     Dates: start: 20250206

REACTIONS (2)
  - Ocular stroke [Unknown]
  - Computer vision syndrome [Unknown]
